FAERS Safety Report 17050783 (Version 3)
Quarter: 2019Q4

REPORT INFORMATION
  Report Type: Report from Study
  Country: GR (occurrence: GR)
  Receive Date: 20191119
  Receipt Date: 20191209
  Transmission Date: 20200122
  Serious: Yes (Hospitalization)
  Sender: FDA-Public Use
  Company Number: GR-BIOGEN-2019BI00806841

PATIENT
  Age: 3 Year
  Sex: Male
  Weight: 12 kg

DRUGS (6)
  1. COLISTIN [Concomitant]
     Active Substance: COLISTIN
     Indication: RESPIRATORY DISORDER
     Dosage: 2MIU/ NEBULIZATION
     Route: 065
     Dates: start: 20170228
  2. SPINRAZA [Suspect]
     Active Substance: NUSINERSEN
     Indication: SPINAL MUSCULAR ATROPHY
     Route: 037
     Dates: start: 20161220
  3. MIRALAX [Concomitant]
     Active Substance: POLYETHYLENE GLYCOL 3350
     Indication: CONSTIPATION
     Dosage: 0,6/ ORAL/ DAILY
     Route: 048
     Dates: start: 20180228
  4. IPRATROPIUM BROMIDE. [Concomitant]
     Active Substance: IPRATROPIUM BROMIDE
     Indication: BRONCHIAL DISORDER
     Dosage: NEBULIZATION
     Route: 065
     Dates: start: 20180228
  5. DOMPERIDONE [Concomitant]
     Active Substance: DOMPERIDONE
     Indication: PRODUCT USED FOR UNKNOWN INDICATION
     Dosage: 6/ ORAL/ DAILY (GASTROKINETIC)
     Route: 048
     Dates: start: 20180228
  6. NEXIUM [Concomitant]
     Active Substance: ESOMEPRAZOLE MAGNESIUM
     Indication: GASTROOESOPHAGEAL REFLUX DISEASE
     Route: 048
     Dates: start: 20180228

REACTIONS (2)
  - Pseudomonas infection [Recovered/Resolved]
  - Staphylococcal infection [Recovered/Resolved]

NARRATIVE: CASE EVENT DATE: 20190920
